FAERS Safety Report 5688716-0 (Version None)
Quarter: 2008Q1

REPORT INFORMATION
  Report Type: 
  Country: None (occurrence: None)
  Receive Date: 20080331
  Receipt Date: 20080324
  Transmission Date: 20080703
  Serious: Yes (Hospitalization)
  Sender: FDA-Public Use
  Company Number: US-BAYER-200713437BCC

PATIENT
  Age: 95 Year
  Sex: Female
  Weight: 50 kg

DRUGS (3)
  1. ALEVE (CAPLET) [Suspect]
     Indication: PAIN
     Route: 048
  2. DIACID [Concomitant]
  3. ASPIRIN [Concomitant]

REACTIONS (1)
  - HAEMATEMESIS [None]
